FAERS Safety Report 17585216 (Version 1)
Quarter: 2020Q1

REPORT INFORMATION
  Report Type: Spontaneous
  Country: US (occurrence: US)
  Receive Date: 20200326
  Receipt Date: 20200326
  Transmission Date: 20200409
  Serious: Yes (Other)
  Sender: FDA-Public Use
  Company Number: None

PATIENT
  Age: 67 Year
  Sex: Male
  Weight: 69.3 kg

DRUGS (8)
  1. MEFORMIN ER [Concomitant]
  2. ATORVASTATIN CALCIUM TABLEST, USP 80 MG* [Suspect]
     Active Substance: ATORVASTATIN CALCIUM
     Indication: AORTIC ANEURYSM
     Dosage: ?          QUANTITY:90 TABLET(S);?
     Route: 048
     Dates: start: 20181218, end: 20200326
  3. QVAR [Concomitant]
     Active Substance: BECLOMETHASONE DIPROPIONATE
  4. ZINC SUPPLEMENT [Concomitant]
  5. SEASONAL ALLERGIES [Concomitant]
  6. ATORVASTATIN CALCIUM TABLEST, USP 80 MG* [Suspect]
     Active Substance: ATORVASTATIN CALCIUM
     Indication: HYPERCHOLESTEROLAEMIA
     Dosage: ?          QUANTITY:90 TABLET(S);?
     Route: 048
     Dates: start: 20181218, end: 20200326
  7. QD [Concomitant]
  8. BABY ASPIRIN 81 MG [Concomitant]

REACTIONS (3)
  - Blood cholesterol increased [None]
  - Product substitution issue [None]
  - Therapeutic response decreased [None]

NARRATIVE: CASE EVENT DATE: 20200324
